FAERS Safety Report 9056853 (Version 2)
Quarter: 2013Q2

REPORT INFORMATION
  Report Type: Spontaneous
  Country: SK (occurrence: SK)
  Receive Date: 20130201
  Receipt Date: 20130423
  Transmission Date: 20140414
  Serious: Yes (Hospitalization)
  Sender: FDA-Public Use
  Company Number: SK-GLAXOSMITHKLINE-B0816404A

PATIENT
  Age: 37 Year
  Sex: Male

DRUGS (4)
  1. TROBALT [Suspect]
     Indication: EPILEPSY
     Dosage: 300MG THREE TIMES PER DAY
     Route: 048
     Dates: start: 20120202
  2. KEPPRA [Concomitant]
     Dosage: 1500MG TWICE PER DAY
  3. LAMOTRIGINE [Concomitant]
     Dosage: 150MG TWICE PER DAY
  4. ZONISAMIDE [Concomitant]
     Dosage: 200MG TWICE PER DAY

REACTIONS (4)
  - Hallucination [Recovering/Resolving]
  - Suicidal ideation [Recovered/Resolved]
  - Psychotic disorder [Recovering/Resolving]
  - Personality disorder [Unknown]
